FAERS Safety Report 20851832 (Version 1)
Quarter: 2022Q2

REPORT INFORMATION
  Report Type: Spontaneous
  Country: FR (occurrence: FR)
  Receive Date: 20220520
  Receipt Date: 20220520
  Transmission Date: 20220721
  Serious: Yes (Other)
  Sender: FDA-Public Use
  Company Number: FR-AFSSAPS-RN20221079

PATIENT
  Age: 68 Year
  Sex: Female
  Weight: 100 kg

DRUGS (5)
  1. ACETAMINOPHEN [Suspect]
     Active Substance: ACETAMINOPHEN
     Indication: Septic shock
     Dosage: UNK
     Route: 065
     Dates: start: 20220320
  2. MORPHINE [Suspect]
     Active Substance: MORPHINE
     Indication: Product used for unknown indication
     Dosage: UNK
     Route: 065
     Dates: start: 20220320
  3. AMPHOTERICIN B [Suspect]
     Active Substance: AMPHOTERICIN B
     Indication: Septic shock
     Dosage: UNK
     Route: 065
     Dates: start: 20220401, end: 20220416
  4. SOMATOSTATIN [Suspect]
     Active Substance: SOMATOSTATIN
     Indication: Large intestine perforation
     Dosage: UNK
     Route: 065
     Dates: start: 20220331, end: 20220421
  5. FUROSEMIDE [Suspect]
     Active Substance: FUROSEMIDE
     Indication: Septic shock
     Dosage: UNK
     Route: 065
     Dates: start: 20220327

REACTIONS (1)
  - Rash maculo-papular [Not Recovered/Not Resolved]

NARRATIVE: CASE EVENT DATE: 20220414
